FAERS Safety Report 8137991-1 (Version None)
Quarter: 2012Q1

REPORT INFORMATION
  Report Type: 
  Country: None (occurrence: None)
  Receive Date: 20120215
  Receipt Date: 20120131
  Transmission Date: 20120608
  Serious: Yes (Disabling, Other)
  Sender: FDA-Public Use
  Company Number: US-PFIZER INC-2012039790

PATIENT
  Sex: Female
  Weight: 67.12 kg

DRUGS (4)
  1. LASIX [Concomitant]
     Dosage: 20 MG, 1X/DAY
  2. WARFARIN [Concomitant]
     Dosage: 3.5MG, DAILY
  3. SIMVASTATIN [Interacting]
     Indication: HYPERLIPIDAEMIA
     Dosage: 40 MG, 1X/DAY
     Route: 048
  4. VERAPAMIL HCL [Suspect]
     Dosage: 80 MG, 2X/DAY

REACTIONS (6)
  - MUSCLE ATROPHY [None]
  - MUSCULAR WEAKNESS [None]
  - MUSCLE INJURY [None]
  - ABASIA [None]
  - DRUG INTERACTION [None]
  - FIBROMYALGIA [None]
